FAERS Safety Report 13684334 (Version 1)
Quarter: 2017Q2

REPORT INFORMATION
  Report Type: Spontaneous
  Country: DK (occurrence: DK)
  Receive Date: 20170623
  Receipt Date: 20170623
  Transmission Date: 20170830
  Serious: Yes (Other)
  Sender: FDA-Public Use
  Company Number: DK-009507513-1706DNK006716

PATIENT
  Age: 85 Year
  Sex: Female

DRUGS (2)
  1. TEMOZOLOMIDE. [Suspect]
     Active Substance: TEMOZOLOMIDE
     Indication: METASTATIC MALIGNANT MELANOMA
     Dosage: STANDARD DOSE
     Route: 048
     Dates: start: 201406, end: 2014
  2. TEMOZOLOMIDE. [Suspect]
     Active Substance: TEMOZOLOMIDE
     Dosage: REDUCTION TO 50% DOSE
     Route: 048
     Dates: start: 2014, end: 2014

REACTIONS (4)
  - Pancytopenia [Unknown]
  - Thrombosis [Unknown]
  - Localised infection [Unknown]
  - Drug intolerance [Unknown]

NARRATIVE: CASE EVENT DATE: 2014
